FAERS Safety Report 4933947-8 (Version None)
Quarter: 2006Q1

REPORT INFORMATION
  Report Type: 
  Country: None (occurrence: None)
  Receive Date: 20060303
  Receipt Date: 20060224
  Transmission Date: 20060701
  Serious: Yes (Hospitalization)
  Sender: FDA-Public Use
  Company Number: TPA2006A00339

PATIENT
  Age: 72 Year
  Sex: Male
  Weight: 68.0396 kg

DRUGS (2)
  1. ACTOS [Suspect]
     Indication: DIABETES MELLITUS NON-INSULIN-DEPENDENT
     Dosage: SEE IMAGE, PER ORAL
     Route: 048
  2. GLUCOVANCE [Concomitant]

REACTIONS (2)
  - BLOOD GLUCOSE INCREASED [None]
  - CARDIAC STRESS TEST ABNORMAL [None]
